FAERS Safety Report 4420593-8 (Version None)
Quarter: 2004Q3

REPORT INFORMATION
  Report Type: 
  Country: None (occurrence: None)
  Receive Date: 20040806
  Receipt Date: 20040806
  Transmission Date: 20050211
  Serious: Yes (Life-Threatening, Hospitalization)
  Sender: FDA-Public Use
  Company Number: None

PATIENT
  Age: 81 Year
  Sex: Male
  Weight: 58.5 kg

DRUGS (3)
  1. LISINOPRIL [Suspect]
  2. KCL TAB [Suspect]
  3. BACTRIM [Suspect]

REACTIONS (3)
  - COMA [None]
  - ELECTROCARDIOGRAM T WAVE ABNORMAL [None]
  - RENAL DISORDER [None]
